FAERS Safety Report 5608901-3 (Version None)
Quarter: 2008Q1

REPORT INFORMATION
  Report Type: 
  Country: None (occurrence: None)
  Receive Date: 20080131
  Receipt Date: 20080122
  Transmission Date: 20080703
  Serious: Yes (Hospitalization)
  Sender: FDA-Public Use
  Company Number: PHBS2008DK01300

PATIENT
  Sex: Male
  Weight: 2.92 kg

DRUGS (7)
  1. LEPONEX [Suspect]
     Dosage: MATERNAL DOSE: 450 MG/D
     Route: 064
  2. LEPONEX [Suspect]
     Dosage: MATERNAL DOSE: 200 MG/D
     Route: 064
  3. CISORDINOL [Concomitant]
     Route: 064
  4. CISORDINOL DEPOT [Concomitant]
     Route: 064
  5. NOZINAN [Concomitant]
     Route: 064
  6. LYSANTIN [Concomitant]
     Route: 064
  7. NORITREN [Concomitant]
     Route: 064

REACTIONS (6)
  - DRUG EXPOSURE DURING PREGNANCY [None]
  - GASTRIC DISORDER [None]
  - HEART SOUNDS ABNORMAL [None]
  - REGURGITATION [None]
  - SURGERY [None]
  - WEIGHT DECREASED [None]
